FAERS Safety Report 16938765 (Version 2)
Quarter: 2019Q4

REPORT INFORMATION
  Report Type: Spontaneous
  Country: US (occurrence: US)
  Receive Date: 20191020
  Receipt Date: 20191231
  Transmission Date: 20200122
  Serious: No
  Sender: FDA-Public Use
  Company Number: US-GLAXOSMITHKLINE-US2019187980

PATIENT
  Sex: Female

DRUGS (2)
  1. BENLYSTA [Suspect]
     Active Substance: BELIMUMAB
     Indication: PRODUCT USED FOR UNKNOWN INDICATION
     Dosage: UNK
     Route: 058
     Dates: start: 20191012
  2. BENLYSTA [Suspect]
     Active Substance: BELIMUMAB
     Indication: PRODUCT USED FOR UNKNOWN INDICATION
     Dosage: UNK
     Route: 042
     Dates: start: 201812

REACTIONS (4)
  - Underdose [Unknown]
  - Exposure via skin contact [Unknown]
  - Headache [Recovered/Resolved]
  - Wrong technique in device usage process [Unknown]

NARRATIVE: CASE EVENT DATE: 2019
